FAERS Safety Report 6490299-2 (Version None)
Quarter: 2009Q4

REPORT INFORMATION
  Report Type: 
  Country: None (occurrence: None)
  Receive Date: 20091211
  Receipt Date: 20091202
  Transmission Date: 20100525
  Serious: Yes (Hospitalization)
  Sender: FDA-Public Use
  Company Number: JP-ASTRAZENECA-2009SE28955

PATIENT
  Age: 73 Year
  Sex: Male

DRUGS (18)
  1. MEROPEN [Suspect]
     Indication: PNEUMONIA
     Route: 042
     Dates: start: 20091113, end: 20091116
  2. PACETCOOL [Suspect]
     Indication: PNEUMONIA
     Dates: start: 20091110, end: 20091112
  3. TAMIFLU [Concomitant]
     Indication: ANTIVIRAL PROPHYLAXIS
     Route: 048
     Dates: start: 20091110, end: 20091115
  4. AMLODIN [Concomitant]
     Indication: HYPERTENSION
     Route: 048
     Dates: start: 20091110
  5. CRESTOR [Concomitant]
     Indication: DYSLIPIDAEMIA
     Route: 048
     Dates: start: 20091110
  6. ARTIST [Concomitant]
     Indication: HYPERTENSION
     Route: 048
     Dates: start: 20091110
  7. OLMETEC [Concomitant]
     Indication: HYPERTENSION
     Route: 048
     Dates: start: 20091110, end: 20091117
  8. OLMETEC [Concomitant]
     Route: 048
     Dates: start: 20091118, end: 20091202
  9. CALONAL [Concomitant]
     Indication: PYREXIA
     Route: 048
     Dates: start: 20091111, end: 20091114
  10. LACB R [Concomitant]
     Indication: CLOSTRIDIUM DIFFICILE COLITIS
     Route: 048
     Dates: start: 20091113, end: 20091117
  11. PHELLOBERIN [Concomitant]
     Indication: CLOSTRIDIUM DIFFICILE COLITIS
     Route: 048
     Dates: start: 20091113, end: 20091117
  12. GAMMAGARD [Concomitant]
     Indication: PNEUMONIA
     Route: 042
     Dates: start: 20091113, end: 20091115
  13. ZITHROMAX [Concomitant]
     Indication: PNEUMONIA
     Route: 048
     Dates: start: 20091113, end: 20091113
  14. ZITHROMAX [Concomitant]
     Route: 048
     Dates: start: 20091122, end: 20091122
  15. GLYCYRON [Concomitant]
     Indication: LIVER DISORDER
     Route: 048
     Dates: start: 20091116, end: 20091202
  16. TEOFURMATE L [Concomitant]
     Indication: ASTHMA
     Route: 048
     Dates: start: 20091117, end: 20091123
  17. TEOFURMATE L [Concomitant]
     Indication: PNEUMONIA
     Route: 048
     Dates: start: 20091117, end: 20091123
  18. METFORMIN HCL [Concomitant]
     Indication: DIABETES MELLITUS
     Route: 048
     Dates: start: 20091121

REACTIONS (1)
  - HEPATIC FUNCTION ABNORMAL [None]
